FAERS Safety Report 7157060-7 (Version None)
Quarter: 2010Q4

REPORT INFORMATION
  Report Type: 
  Country: None (occurrence: None)
  Receive Date: 20101214
  Receipt Date: 20091230
  Transmission Date: 20110411
  Serious: No
  Sender: FDA-Public Use
  Company Number: US-ASTRAZENECA-2009SE34031

PATIENT
  Age: 718 Month
  Sex: Female
  Weight: 95.3 kg

DRUGS (9)
  1. CRESTOR [Suspect]
     Indication: BLOOD CHOLESTEROL INCREASED
     Route: 048
     Dates: start: 20091001, end: 20091201
  2. CYMBALTA [Concomitant]
  3. NORCO [Concomitant]
  4. ALTACE [Concomitant]
  5. CLARINEX [Concomitant]
  6. ARICEPT [Concomitant]
  7. LYRICA [Concomitant]
  8. PROTONIX [Concomitant]
  9. RELAFEN [Concomitant]

REACTIONS (1)
  - BONE PAIN [None]
